FAERS Safety Report 7618249-3 (Version None)
Quarter: 2011Q3

REPORT INFORMATION
  Report Type: 
  Country: None (occurrence: None)
  Receive Date: 20110718
  Receipt Date: 20110706
  Transmission Date: 20111222
  Serious: Yes (Hospitalization)
  Sender: FDA-Public Use
  Company Number: FR-GLAXOSMITHKLINE-B0731096A

PATIENT
  Sex: Male

DRUGS (3)
  1. ONDANSERTRON HYDROCHLORIDE [Suspect]
     Indication: PROPHYLAXIS OF NAUSEA AND VOMITING
     Dosage: 8MG CYCLIC
     Route: 048
     Dates: start: 20110502, end: 20110502
  2. DOCETAXEL [Suspect]
     Indication: PROSTATE CANCER
     Dosage: 137.75MG CYCLIC
     Route: 042
     Dates: start: 20110502, end: 20110502
  3. PREDNISOLONE [Suspect]
     Indication: PREMEDICATION
     Dosage: 60MG PER DAY
     Route: 048
     Dates: start: 20110501, end: 20110502

REACTIONS (3)
  - PARAESTHESIA [None]
  - LOCALISED OEDEMA [None]
  - TREMOR [None]
